FAERS Safety Report 19426797 (Version 9)
Quarter: 2021Q4

REPORT INFORMATION
  Report Type: Spontaneous
  Country: GB (occurrence: GB)
  Receive Date: 20210616
  Receipt Date: 20211029
  Transmission Date: 20220303
  Serious: Yes (Hospitalization, Disabling, Other)
  Sender: FDA-Public Use
  Company Number: GB-EMA-DD-20191217-SHARMA_D2-090642

PATIENT
  Age: 8 Year
  Sex: Female
  Weight: 23.35 kg

DRUGS (43)
  1. RANITIDINE [Suspect]
     Active Substance: RANITIDINE
     Indication: Gastrooesophageal reflux disease
     Dosage: 100 MG, QD (50 MG BID)
     Route: 048
     Dates: start: 20191018
  2. RANITIDINE [Suspect]
     Active Substance: RANITIDINE
     Dosage: UNK
     Route: 048
  3. RANITIDINE [Suspect]
     Active Substance: RANITIDINE
     Dosage: UNK, BID
     Route: 048
  4. DEXAMETHASONE [Suspect]
     Active Substance: DEXAMETHASONE
     Indication: Product used for unknown indication
     Dosage: 3.5 MILLIGRAM, QD (3.5 MG, QD)
     Route: 048
     Dates: start: 20200212
  5. DEXAMETHASONE [Suspect]
     Active Substance: DEXAMETHASONE
     Dosage: 1.6 MILLIGRAM, QD (1.6 MG, QD)
     Route: 048
     Dates: start: 20200215, end: 20200221
  6. DEXAMETHASONE [Suspect]
     Active Substance: DEXAMETHASONE
     Dosage: 9.2 MG, QD (9.2 MILLIGRAM, QD (4.6 MG) )
     Route: 048
     Dates: start: 20200207, end: 20200221
  7. DEXAMETHASONE [Suspect]
     Active Substance: DEXAMETHASONE
     Dosage: UNK
     Route: 048
  8. DEXAMETHASONE [Suspect]
     Active Substance: DEXAMETHASONE
     Dosage: 7 MG, QD (7 MILLIGRAM, QD (3.5 MG, BID)  )
     Route: 048
     Dates: start: 20200210
  9. VANDETANIB [Suspect]
     Active Substance: VANDETANIB
     Indication: Brain stem glioma
     Dosage: 100 MG, QOD
     Route: 048
     Dates: start: 20191018, end: 20200207
  10. VANDETANIB [Suspect]
     Active Substance: VANDETANIB
     Dosage: 65 MG/M2, QD (65 MILLIGRAM/SQ. METER, QD)
     Route: 048
     Dates: start: 20200316, end: 20200420
  11. VANDETANIB [Suspect]
     Active Substance: VANDETANIB
     Dosage: 65 MILLIGRAM/SQ. METER, QD
     Route: 048
     Dates: start: 20191009, end: 20191014
  12. VANDETANIB [Suspect]
     Active Substance: VANDETANIB
     Dosage: 100 MG
     Route: 048
     Dates: start: 20191009, end: 20191014
  13. VANDETANIB [Suspect]
     Active Substance: VANDETANIB
     Dosage: 100 MG, QOD (54 MILLIGRAM/SQ. METER, QD)
     Route: 048
     Dates: start: 20200212, end: 20200302
  14. EVEROLIMUS [Suspect]
     Active Substance: EVEROLIMUS
     Indication: Brain stem glioma
     Dosage: 5 MG, QD (MONDAY/WEDNESDAY/FRIDAY)
     Route: 048
     Dates: start: 20210207
  15. EVEROLIMUS [Suspect]
     Active Substance: EVEROLIMUS
     Dosage: 2.5 MG, QD (TUESDAY/THURSDAY/SATURDAY/SUNDAY)
     Route: 048
     Dates: start: 20200212
  16. EVEROLIMUS [Suspect]
     Active Substance: EVEROLIMUS
     Dosage: 5 MG, QD  (5MG MONDAY/WEDNESDAY/FRIDAY)
     Route: 048
     Dates: start: 20200212
  17. EVEROLIMUS [Suspect]
     Active Substance: EVEROLIMUS
     Dosage: 5 MG, QD  (5MG MONDAY/WEDNESDAY/FRIDAY)
     Route: 048
     Dates: start: 20190717, end: 20191014
  18. EVEROLIMUS [Suspect]
     Active Substance: EVEROLIMUS
     Dosage: 2.5 MG, QD
     Route: 048
     Dates: start: 20210207
  19. EVEROLIMUS [Suspect]
     Active Substance: EVEROLIMUS
     Dosage: 5 MG (5 MG ON MONDAY, WEDNESDAY AND FRIDAY AND 2.5 MG ON TUESDAY, THURSDAY, SATURDAY AND SUNDAY)
     Route: 048
     Dates: start: 20191001
  20. EVEROLIMUS [Suspect]
     Active Substance: EVEROLIMUS
     Dosage: 5 MG, QD
     Route: 048
     Dates: start: 20210207
  21. EVEROLIMUS [Suspect]
     Active Substance: EVEROLIMUS
     Dosage: 5 MG, QD
     Route: 048
     Dates: start: 20200212
  22. EVEROLIMUS [Suspect]
     Active Substance: EVEROLIMUS
     Dosage: 2.5 MG, QD
     Route: 048
     Dates: start: 20200212
  23. ACETAMINOPHEN [Suspect]
     Active Substance: ACETAMINOPHEN
     Indication: Product used for unknown indication
     Dosage: UNK UNK, QD (QD PM)
     Route: 048
  24. LOPERAMIDE [Suspect]
     Active Substance: LOPERAMIDE
     Indication: Diarrhoea
     Dosage: 2 MG, QID (2 MG ONE CAPSULE UP TO FOUR TIMES A DAY)
     Route: 065
  25. LOPERAMIDE [Suspect]
     Active Substance: LOPERAMIDE
     Indication: Diarrhoea
  26. EVEROLIMUS [Suspect]
     Active Substance: EVEROLIMUS
     Indication: Brain stem glioma
     Dosage: 2.5 MG, QD
     Route: 048
     Dates: start: 20210207
  27. EVEROLIMUS [Suspect]
     Active Substance: EVEROLIMUS
     Dosage: 5 MG, QD (5MG MONDAY/WEDNESDAY/FRIDAY)
     Route: 048
     Dates: start: 20200212
  28. EVEROLIMUS [Suspect]
     Active Substance: EVEROLIMUS
     Dosage: 5 MG (5 MG ON MONDAY,WEDNESDAY AND FRIDAY AND 2.5 MG ON TUESDAY,THURSDAY,SATURDAY AND SUNDAY)
     Route: 048
     Dates: start: 20190717, end: 20191014
  29. EVEROLIMUS [Suspect]
     Active Substance: EVEROLIMUS
     Dosage: 5 MG, QD (MONDAY/WEDNESDAY/FRIDAY)
     Route: 048
     Dates: start: 20210207
  30. EVEROLIMUS [Suspect]
     Active Substance: EVEROLIMUS
     Dosage: 2.5 MG, QD (TUESDAY/THURSDAY/SATURDAY/SUNDAY)
     Route: 048
     Dates: start: 20200212
  31. AFINITOR [Suspect]
     Active Substance: EVEROLIMUS
     Indication: Brain stem glioma
     Dosage: 5 MG, MONDAY/WEDNESDAY/FRIDAY
     Route: 048
     Dates: start: 20190717, end: 20200207
  32. AFINITOR [Suspect]
     Active Substance: EVEROLIMUS
     Indication: Brain stem glioma
     Dosage: UNK (5 MG MONDAY/WEDNESDAY/FRIDAY AND 2.5 MG TUESDAY/THURSDAY/SATURDAY/SUNDAY)
     Route: 048
     Dates: start: 20190718, end: 20200207
  33. AFINITOR [Suspect]
     Active Substance: EVEROLIMUS
     Dosage: 5 MG MONDAY/WEDNESDAY/FRIDAY AND 2.5 MG TUESDAY/THURSDAY/SATURDAY/SUNDAY
     Route: 048
     Dates: start: 20200213
  34. AFINITOR [Suspect]
     Active Substance: EVEROLIMUS
     Dosage: 2.5 MG, BID, 5 MG MONDAY/\NEDNESDAY/FRIDAY AND 2.5 MG TUESDAY/THURSDAY/SATURDAY/SUNDAY
     Route: 048
     Dates: start: 20200213
  35. AFINITOR [Suspect]
     Active Substance: EVEROLIMUS
     Dosage: 2.5 MG, ON TUESDAY, THURSDAY, SATURDAY AND SUNDAY
     Route: 048
     Dates: start: 20190718, end: 20200207
  36. AFINITOR [Suspect]
     Active Substance: EVEROLIMUS
     Dosage: 2.5 MG, QD 5 MG, MONDAY/WEDNESDAY/FRIDAY
     Route: 048
     Dates: start: 20190717, end: 20200207
  37. AFINITOR [Suspect]
     Active Substance: EVEROLIMUS
     Dosage: 5 MG, QD MG QD, MONDAY/WEDNESDAY/FRIDAY; CUMULATIVE DOSE: 2035.0 MG
     Route: 048
     Dates: start: 20200212
  38. AFINITOR [Suspect]
     Active Substance: EVEROLIMUS
     Dosage: 2.5 MG, QD MG QD, MONDAY/WEDNESDAY/FRIDAY; CUMULATIVE DOSE: 2035.0 MG
     Route: 048
     Dates: start: 20200212
  39. LANSOPRAZOLE [Suspect]
     Active Substance: LANSOPRAZOLE
     Indication: Product used for unknown indication
     Dosage: UNK
     Route: 065
  40. COTRIMOXAZOLE [Concomitant]
     Active Substance: SULFAMETHOXAZOLE\TRIMETHOPRIM
     Indication: Product used for unknown indication
     Dosage: 360 MG, QD
     Route: 065
  41. COTRIMOXAZOLE [Concomitant]
     Active Substance: SULFAMETHOXAZOLE\TRIMETHOPRIM
     Dosage: 720 MG, QD (720 MG, 1X/DAY (360 MG BD ON SAT/SUN ONLY) )
     Route: 065
  42. RANITIDINE [Concomitant]
     Active Substance: RANITIDINE
     Indication: Product used for unknown indication
     Dosage: 50 MG, BID
     Route: 065
     Dates: start: 20191018
  43. DEXAMETHASONE [Concomitant]
     Active Substance: DEXAMETHASONE
     Indication: Product used for unknown indication
     Dosage: VARIABLE; 4MG BD WEANED TO 0.5MG SECOND DAILY
     Route: 065
     Dates: start: 20191101, end: 20200221

REACTIONS (40)
  - Facial paralysis [Recovered/Resolved]
  - Brain stem glioma [Unknown]
  - Malignant neoplasm progression [Unknown]
  - Blood triglycerides increased [Unknown]
  - White blood cell count decreased [Not Recovered/Not Resolved]
  - Facial paralysis [Recovered/Resolved]
  - Blood creatinine increased [Unknown]
  - Hypophosphataemia [Recovered/Resolved]
  - Electrocardiogram QT prolonged [Recovered/Resolved]
  - Abdominal distension [Recovered/Resolved]
  - Hypophagia [Not Recovered/Not Resolved]
  - Blood cholesterol increased [Recovered/Resolved]
  - Myoclonus [Recovered/Resolved]
  - Stomatitis [Recovered/Resolved]
  - Ataxia [Unknown]
  - Ocular hyperaemia [Recovered/Resolved]
  - Hypertension [Not Recovered/Not Resolved]
  - Disease progression [Unknown]
  - Neutrophil count decreased [Recovered/Resolved]
  - Ataxia [Recovered/Resolved]
  - Blood creatinine increased [Recovered/Resolved]
  - Blood cholesterol increased [Unknown]
  - Hemiparesis [Recovered/Resolved]
  - Ocular hyperaemia [Recovered/Resolved]
  - Brain stem glioma [Unknown]
  - Reflux gastritis [Recovered/Resolved]
  - Lymphocyte count decreased [Not Recovered/Not Resolved]
  - Gastrooesophageal reflux disease [Recovered/Resolved]
  - Blood cholesterol increased [Not Recovered/Not Resolved]
  - Alanine aminotransferase increased [Recovered/Resolved]
  - Blood cholesterol increased [Unknown]
  - Abdominal distension [Recovered/Resolved]
  - Neutrophil count decreased [Recovered/Resolved]
  - Flatulence [Recovered/Resolved]
  - Medication error [Unknown]
  - Product use in unapproved indication [Unknown]
  - Facial paralysis [Unknown]
  - Electrocardiogram QT prolonged [Recovered/Resolved]
  - Blood cholesterol increased [Unknown]
  - Off label use [Unknown]

NARRATIVE: CASE EVENT DATE: 20190111
